FAERS Safety Report 9945535 (Version 1)
Quarter: 2014Q1

REPORT INFORMATION
  Report Type: Report from Study
  Country: US (occurrence: US)
  Receive Date: 20140303
  Receipt Date: 20140303
  Transmission Date: 20141002
  Serious: No
  Sender: FDA-Public Use
  Company Number: US-ABBVIE-13P-163-1049179-00

PATIENT
  Age: 65 Year
  Sex: Female

DRUGS (15)
  1. HUMIRA [Suspect]
     Indication: CROHN^S DISEASE
     Dosage: LOADING DOSE
     Dates: start: 20130125, end: 20130125
  2. HUMIRA [Suspect]
     Dosage: LOADING DOSE
     Dates: start: 20130208
  3. PENTASA [Concomitant]
     Indication: CROHN^S DISEASE
  4. PROPRANOLOL [Concomitant]
     Indication: MIGRAINE PROPHYLAXIS
  5. AMITRIPTYLINE [Concomitant]
     Indication: INJECTION SITE ERYTHEMA
     Dosage: 20 MG DAILY
  6. SIMVASTATIN [Concomitant]
     Indication: BLOOD CHOLESTEROL INCREASED
     Dosage: 20 MG DAILY
  7. CELEXA [Concomitant]
     Indication: DEPRESSION
     Dosage: 20 MG DAILY
  8. LEVOTHYROXINE [Concomitant]
     Indication: THYROID DISORDER
     Dosage: 75 MCG DAILY
  9. OMEPRAZOLE [Concomitant]
     Indication: GASTRIC DISORDER
     Dosage: 20 MG DAILY
  10. D3 [Concomitant]
     Indication: VITAMIN D DECREASED
     Dosage: 5000 DAILY
  11. PROBIOTICS [Concomitant]
     Indication: NUTRITIONAL SUPPLEMENTATION
     Dosage: DAILY
  12. FISH OIL [Concomitant]
     Indication: NUTRITIONAL SUPPLEMENTATION
     Dosage: DAILY
  13. FOOD ENZYMES [Concomitant]
     Indication: NUTRITIONAL SUPPLEMENTATION
  14. CALCIUM [Concomitant]
     Indication: NUTRITIONAL SUPPLEMENTATION
  15. CHROMIUM PICOLINATE [Concomitant]
     Indication: NUTRITIONAL SUPPLEMENTATION
     Dosage: DAILY

REACTIONS (2)
  - Urticaria papular [Not Recovered/Not Resolved]
  - Injection site erythema [Not Recovered/Not Resolved]
